FAERS Safety Report 8155635-X (Version None)
Quarter: 2012Q1

REPORT INFORMATION
  Report Type: 
  Country: None (occurrence: None)
  Receive Date: 20120222
  Receipt Date: 20120217
  Transmission Date: 20120608
  Serious: No
  Sender: FDA-Public Use
  Company Number: US-PFIZER INC-2012043648

PATIENT
  Sex: Female

DRUGS (4)
  1. LYRICA [Suspect]
     Dosage: 25 MG, UNK
  2. LYRICA [Suspect]
     Dosage: 100 MG, 3X/DAY
  3. LYRICA [Suspect]
     Dosage: 75 MG, UNK
  4. LYRICA [Suspect]
     Dosage: 50 MG, UNK

REACTIONS (2)
  - DRUG INEFFECTIVE [None]
  - THERAPEUTIC RESPONSE UNEXPECTED [None]
